FAERS Safety Report 5354253-6 (Version None)
Quarter: 2007Q2

REPORT INFORMATION
  Report Type: 
  Country: None (occurrence: None)
  Receive Date: 20070612
  Receipt Date: 20070531
  Transmission Date: 20071010
  Serious: Yes (Hospitalization)
  Sender: FDA-Public Use
  Company Number: DE-ELI_LILLY_AND_COMPANY-DE200706000031

PATIENT
  Age: 69 Year
  Sex: Male

DRUGS (5)
  1. BYETTA [Suspect]
     Indication: DIABETES MELLITUS
     Dosage: 10 UNK, UNK
     Route: 058
  2. ACETYLSALICYLIC ACID SRT [Concomitant]
     Route: 048
  3. SIMVASTATIN [Concomitant]
     Route: 048
  4. AMARYL [Concomitant]
     Dosage: 6 MG, DAILY (1/D)
     Route: 048
  5. METFORMIN HCL [Concomitant]
     Route: 048

REACTIONS (4)
  - GLYCOSYLATED HAEMOGLOBIN INCREASED [None]
  - METABOLIC DISORDER [None]
  - NAUSEA [None]
  - VOMITING [None]
